FAERS Safety Report 8820977 (Version 5)
Quarter: 2013Q1

REPORT INFORMATION
  Report Type: Spontaneous
  Country: MK (occurrence: MK)
  Receive Date: 20121002
  Receipt Date: 20130211
  Transmission Date: 20140127
  Serious: Yes (Hospitalization)
  Sender: FDA-Public Use
  Company Number: MK-JNJFOC-20120910941

PATIENT
  Age: 24 Year
  Sex: Female

DRUGS (1)
  1. TRAMADOL HYDROCHLORIDE [Suspect]
     Indication: PRODUCT USED FOR UNKNOWN INDICATION
     Dosage: 1000 MG - 20 PILLS OF 50 MG
     Route: 065

REACTIONS (5)
  - Grand mal convulsion [Recovered/Resolved]
  - Somnolence [Unknown]
  - Suicide attempt [Unknown]
  - Overdose [Unknown]
  - Hypotension [Unknown]
